FAERS Safety Report 7170815-8 (Version None)
Quarter: 2010Q4

REPORT INFORMATION
  Report Type: 
  Country: None (occurrence: None)
  Receive Date: 20101217
  Receipt Date: 20101208
  Transmission Date: 20110411
  Serious: Yes (Hospitalization)
  Sender: FDA-Public Use
  Company Number: US-ELI_LILLY_AND_COMPANY-US201003005221

PATIENT
  Sex: Female
  Weight: 56.2 kg

DRUGS (19)
  1. PEMETREXED [Suspect]
     Indication: NON-SMALL CELL LUNG CANCER
     Dosage: 500 MG/M2, OTHER
     Route: 042
     Dates: start: 20100128, end: 20100218
  2. CARBOPLATIN [Suspect]
     Indication: NON-SMALL CELL LUNG CANCER
     Dosage: 6 D/F, OTHER
     Route: 042
     Dates: start: 20100128, end: 20100218
  3. BEVACIZUMAB [Suspect]
     Indication: NON-SMALL CELL LUNG CANCER
     Dosage: 15 MG/KG, OTHER
     Route: 042
     Dates: start: 20100128, end: 20100218
  4. ALUMINIUM HYDROXIDE W/ MAGNESIUM HYDROXIDE [Concomitant]
     Indication: GASTROOESOPHAGEAL REFLUX DISEASE
     Dates: start: 20100202
  5. DEXAMETHASONE [Concomitant]
     Indication: ANTIEMETIC SUPPORTIVE CARE
     Dates: start: 20100128
  6. LACTULOSE [Concomitant]
     Indication: CONSTIPATION
     Dates: start: 20100225
  7. METOPROLOL [Concomitant]
     Indication: HYPERTENSION
     Dates: start: 20091231
  8. MORPHINE SULFATE [Concomitant]
     Indication: PAIN
     Dosage: UNK, UNK
     Dates: start: 20100202
  9. PANTOPRAZOLE [Concomitant]
     Dates: start: 20100225
  10. SENNA-S /01035001/ [Concomitant]
     Indication: CONSTIPATION
     Dates: start: 20100202
  11. FOLIC ACID [Concomitant]
     Indication: PROPHYLAXIS
     Dates: start: 20100201
  12. VITAMIN B-12 [Concomitant]
  13. PROCHLORPERAZINE [Concomitant]
     Indication: ANTIEMETIC SUPPORTIVE CARE
     Dates: start: 20100114
  14. MAGNESIUM HYDROXIDE [Concomitant]
     Indication: GASTROOESOPHAGEAL REFLUX DISEASE
     Dates: start: 20100223
  15. ONDANSETRON [Concomitant]
     Indication: ANTIEMETIC SUPPORTIVE CARE
     Dates: start: 20100114
  16. LORAZEPAM [Concomitant]
     Indication: PROPHYLAXIS
     Dates: start: 20091230
  17. GRANISETRON HCL [Concomitant]
     Indication: ANTIEMETIC SUPPORTIVE CARE
     Dates: start: 20100313
  18. LANSOPRAZOLE [Concomitant]
     Indication: GASTROOESOPHAGEAL REFLUX DISEASE
     Dates: start: 20100313
  19. OXYCODONE [Concomitant]
     Indication: PAIN
     Dates: start: 20100111

REACTIONS (6)
  - INTESTINAL PERFORATION [None]
  - NAUSEA [None]
  - NON-CARDIAC CHEST PAIN [None]
  - PERITONITIS [None]
  - SYNCOPE [None]
  - VOMITING [None]
